FAERS Safety Report 25127590 (Version 1)
Quarter: 2025Q1

REPORT INFORMATION
  Report Type: Spontaneous
  Country: ZA (occurrence: ZA)
  Receive Date: 20250327
  Receipt Date: 20250327
  Transmission Date: 20250408
  Serious: Yes (Other)
  Sender: ALKEM
  Company Number: ZA-ALKEM LABORATORIES LIMITED-ZA-ALKEM-2024-09412

PATIENT

DRUGS (1)
  1. QUETIAPINE FUMARATE [Suspect]
     Active Substance: QUETIAPINE FUMARATE
     Indication: Generalised anxiety disorder
     Route: 065

REACTIONS (1)
  - Syncope [Unknown]
